FAERS Safety Report 8571666-X (Version None)
Quarter: 2012Q3

REPORT INFORMATION
  Report Type: 
  Country: None (occurrence: None)
  Receive Date: 20120806
  Receipt Date: 20120725
  Transmission Date: 20120928
  Serious: Yes (Hospitalization, Other)
  Sender: FDA-Public Use
  Company Number: JP-JNJFOC-20120800009

PATIENT
  Age: 61 Year
  Sex: Male

DRUGS (15)
  1. DEPAKENE [Concomitant]
     Indication: BIPOLAR I DISORDER
     Route: 048
  2. VALPROATE SODIUM [Suspect]
     Indication: PRODUCT USED FOR UNKNOWN INDICATION
     Route: 065
  3. BEZATOL SR [Concomitant]
     Route: 065
  4. LEVOTOMIN [Concomitant]
     Route: 065
  5. SILECE [Concomitant]
     Route: 065
  6. LEVOTHYROXINE SODIUM [Concomitant]
     Route: 048
  7. VALPROATE SODIUM [Concomitant]
     Route: 065
  8. PANTOSIN [Concomitant]
     Route: 065
  9. RISPERDAL [Suspect]
     Indication: SCHIZOPHRENIA
     Dosage: 1 MG TABLET
     Route: 048
  10. LENDORMIN D [Concomitant]
     Route: 065
  11. SEROQUEL [Concomitant]
     Route: 065
  12. ANTIBIOTICS [Suspect]
     Indication: PYREXIA
     Route: 065
  13. JUVELA N [Concomitant]
     Route: 065
  14. LULLAN [Concomitant]
     Route: 065
  15. RISUMIC [Concomitant]
     Route: 065

REACTIONS (4)
  - PYREXIA [None]
  - PANCREATIC ENZYMES INCREASED [None]
  - WHITE BLOOD CELL COUNT DECREASED [None]
  - HOSPITALISATION [None]
